FAERS Safety Report 6927829-X (Version None)
Quarter: 2010Q3

REPORT INFORMATION
  Report Type: 
  Country: None (occurrence: None)
  Receive Date: 20100817
  Receipt Date: 20100810
  Transmission Date: 20110219
  Serious: Yes (Hospitalization)
  Sender: FDA-Public Use
  Company Number: US-SANOFI-AVENTIS-2010SA047863

PATIENT
  Sex: Male

DRUGS (3)
  1. LANTUS [Suspect]
     Indication: TYPE 2 DIABETES MELLITUS
     Dosage: 10 UNITS IN THE AM AND 20 UNITS IN THE PM
     Route: 058
     Dates: start: 20080101
  2. PREDNISONE [Suspect]
     Indication: POLYMYALGIA RHEUMATICA
     Route: 065
  3. ALL OTHER THERAPEUTIC PRODUCTS [Suspect]
     Route: 008

REACTIONS (6)
  - ABASIA [None]
  - ARRHYTHMIA [None]
  - ARTHRALGIA [None]
  - HYPERGLYCAEMIA [None]
  - POLYMYALGIA RHEUMATICA [None]
  - UPPER RESPIRATORY TRACT INFECTION [None]
